FAERS Safety Report 4614261-7 (Version None)
Quarter: 2005Q1

REPORT INFORMATION
  Report Type: 
  Country: None (occurrence: None)
  Receive Date: 20050315
  Receipt Date: 20050225
  Transmission Date: 20050727
  Serious: Yes (Other)
  Sender: FDA-Public Use
  Company Number: 10455

PATIENT
  Age: 57 Year
  Sex: Female
  Weight: 92.0802 kg

DRUGS (1)
  1. PACLITAXEL [Suspect]
     Indication: ENDOMETRIAL CANCER
     Dosage: 341 MG FREQ IV
     Route: 042
     Dates: start: 20050215, end: 20050215

REACTIONS (6)
  - ABDOMINAL DISTENSION [None]
  - BACK PAIN [None]
  - CHEST DISCOMFORT [None]
  - DYSPNOEA [None]
  - FEELING HOT [None]
  - FLUSHING [None]
